FAERS Safety Report 24311674 (Version 2)
Quarter: 2024Q4

REPORT INFORMATION
  Report Type: Spontaneous
  Country: CA (occurrence: CA)
  Receive Date: 20240912
  Receipt Date: 20241015
  Transmission Date: 20250115
  Serious: Yes (Other)
  Sender: PFIZER
  Company Number: CA-PFIZER INC-202200798077

PATIENT
  Age: 40 Year
  Sex: Male
  Weight: 93.2 kg

DRUGS (12)
  1. RUXIENCE [Suspect]
     Active Substance: RITUXIMAB-PVVR
     Indication: Glomerulonephritis membranous
     Dosage: 1 G X 2
     Route: 042
  2. RUXIENCE [Suspect]
     Active Substance: RITUXIMAB-PVVR
     Dosage: 1000 MG, DAY 1 AND DAY 15
     Route: 042
     Dates: start: 20221207
  3. RUXIENCE [Suspect]
     Active Substance: RITUXIMAB-PVVR
     Dosage: 1000 MG, DAY 1 AND DAY 15
     Route: 042
     Dates: start: 20221221
  4. RUXIENCE [Suspect]
     Active Substance: RITUXIMAB-PVVR
     Dosage: 1000 MG, DAY 1 AND DAY 15
     Route: 042
     Dates: start: 20240827
  5. WARFARIN [Concomitant]
     Active Substance: WARFARIN
     Dosage: 6 MG, 1X/DAY
     Route: 048
     Dates: start: 20240826
  6. ROSUVASTATIN [Concomitant]
     Active Substance: ROSUVASTATIN
     Dosage: 5 MG, 1X/DAY
     Route: 048
  7. ENALAPRIL [Concomitant]
     Active Substance: ENALAPRIL
     Dosage: 2.5 MG, 2X/DAY
     Route: 048
  8. FORMOTEROL [Concomitant]
     Active Substance: FORMOTEROL
     Dosage: 200 UG, 2X/DAY, 2 INHALATIONS
  9. BUDESONIDE [Concomitant]
     Active Substance: BUDESONIDE
     Dosage: UNK, 2X/DAY (2 INHALATIONS)
  10. POLYMYXIN B [Concomitant]
     Active Substance: POLYMYXIN B
     Dosage: UNK, 1X/DAY (4 GTTS A DAY)
     Route: 001
  11. GRAMICIDIN [Concomitant]
     Active Substance: GRAMICIDIN
     Dosage: UNK, 1X/DAY (4 GTTS A DAY)
     Route: 001
  12. ENOXAPARIN [Concomitant]
     Active Substance: ENOXAPARIN
     Dosage: 100 MG, 2X/DAY
     Route: 058

REACTIONS (3)
  - Glomerulonephritis [Unknown]
  - Disease recurrence [Unknown]
  - Off label use [Unknown]
